FAERS Safety Report 23717356 (Version 4)
Quarter: 2024Q3

REPORT INFORMATION
  Report Type: Spontaneous
  Country: TR (occurrence: TR)
  Receive Date: 20240408
  Receipt Date: 20240718
  Transmission Date: 20241016
  Serious: Yes (Hospitalization)
  Sender: SANOFI AVENTIS
  Company Number: TR-SA-SAC20240319000708

PATIENT
  Age: 46 Year
  Sex: Male

DRUGS (7)
  1. LEMTRADA [Suspect]
     Active Substance: ALEMTUZUMAB
     Indication: Multiple sclerosis
     Dosage: (5X12MG)
     Route: 042
     Dates: start: 20220612, end: 202206
  2. LEMTRADA [Suspect]
     Active Substance: ALEMTUZUMAB
     Dosage: 60 MG (5X 12MG)
     Route: 042
     Dates: start: 20230706, end: 202307
  3. GABAPENTIN [Concomitant]
     Active Substance: GABAPENTIN
     Indication: Myalgia
     Dosage: 800 MG, QD
     Route: 048
  4. PROTINUM [Concomitant]
     Indication: Gastrointestinal disorder
     Dosage: 40 MG, 1X
     Route: 048
  5. THYROMAZOL [Concomitant]
     Indication: Oropharyngeal discomfort
     Dosage: 5 MG, QD
     Route: 048
  6. AKLOVIR [Concomitant]
     Indication: Antiviral treatment
     Dosage: 2 DF, QD
     Route: 048
  7. DALFAMPRIDINE [Concomitant]
     Active Substance: DALFAMPRIDINE
     Indication: Gait disturbance
     Dosage: 10 MG, BID
     Route: 048
     Dates: start: 2019

REACTIONS (12)
  - Drug hypersensitivity [Unknown]
  - Urinary incontinence [Recovered/Resolved]
  - Cough [Recovered/Resolved]
  - Urinary tract infection [Not Recovered/Not Resolved]
  - Asthenia [Recovered/Resolved]
  - Pyrexia [Recovered/Resolved]
  - Fatigue [Recovered/Resolved]
  - Rash [Unknown]
  - Urticaria [Recovered/Resolved]
  - Pyrexia [Recovered/Resolved]
  - Chills [Unknown]
  - C-reactive protein increased [Not Recovered/Not Resolved]

NARRATIVE: CASE EVENT DATE: 20240301
